FAERS Safety Report 8986359 (Version 1)
Quarter: 2012Q4

REPORT INFORMATION
  Report Type: Spontaneous
  Country: IT (occurrence: None)
  Receive Date: 20121109
  Receipt Date: 20121109
  Transmission Date: 20130627
  Serious: Yes (Other)
  Sender: FDA-Public Use
  Company Number: 2012S1000114

PATIENT
  Age: 63 Year
  Sex: Male
  Weight: 90 kg

DRUGS (2)
  1. CUBICIN [Suspect]
     Indication: DEVICE RELATED INFECTION
     Route: 042
     Dates: start: 20111204, end: 20111221
  2. RIFAMPICIN [Concomitant]

REACTIONS (1)
  - Eosinophilia [None]
